FAERS Safety Report 14350184 (Version 3)
Quarter: 2018Q1

REPORT INFORMATION
  Report Type: Report from Study
  Country: US (occurrence: US)
  Receive Date: 20180104
  Receipt Date: 20180308
  Transmission Date: 20180509
  Serious: Yes (Hospitalization)
  Sender: FDA-Public Use
  Company Number: US-PFIZER INC-2017409588

PATIENT
  Age: 72 Year
  Sex: Female

DRUGS (1)
  1. IBRANCE [Suspect]
     Active Substance: PALBOCICLIB
     Indication: BREAST CANCER
     Dosage: 125 MG, 1X/DAY (QD)
     Route: 048
     Dates: start: 20170910

REACTIONS (17)
  - Fatigue [Recovering/Resolving]
  - Epistaxis [Unknown]
  - Drug dose omission [Unknown]
  - Stomatitis [Unknown]
  - Rectal haemorrhage [Unknown]
  - Blood potassium decreased [Unknown]
  - Diarrhoea [Unknown]
  - Dry skin [Unknown]
  - Platelet count decreased [Unknown]
  - Colitis ischaemic [Unknown]
  - Abdominal pain [Unknown]
  - Insomnia [Recovering/Resolving]
  - Asthenia [Unknown]
  - Blood pressure increased [Unknown]
  - Hair texture abnormal [Not Recovered/Not Resolved]
  - Nausea [Unknown]
  - Alopecia [Unknown]

NARRATIVE: CASE EVENT DATE: 2017
